FAERS Safety Report 11721069 (Version 1)
Quarter: 2015Q4

REPORT INFORMATION
  Report Type: Spontaneous
  Country: US (occurrence: US)
  Receive Date: 20151110
  Receipt Date: 20151110
  Transmission Date: 20160304
  Serious: No
  Sender: FDA-Public Use
  Company Number: US-SA-2015SA172213

PATIENT
  Age: 73 Year
  Sex: Male

DRUGS (2)
  1. PRALUENT [Suspect]
     Active Substance: ALIROCUMAB
     Indication: LOW DENSITY LIPOPROTEIN INCREASED
     Route: 065
  2. ALIROCUMAB PREFILLED PEN [Concomitant]

REACTIONS (2)
  - Low density lipoprotein increased [Not Recovered/Not Resolved]
  - Drug ineffective [Unknown]
